FAERS Safety Report 7973942-8 (Version None)
Quarter: 2011Q4

REPORT INFORMATION
  Report Type: 
  Country: None (occurrence: None)
  Receive Date: 20111213
  Receipt Date: 20111128
  Transmission Date: 20120403
  Serious: Yes (Life-Threatening, Hospitalization)
  Sender: FDA-Public Use
  Company Number: US-ROCHE-1016968

PATIENT
  Sex: Female
  Weight: 82.9 kg

DRUGS (1)
  1. VEMURAFENIB [Suspect]
     Indication: METASTATIC MALIGNANT MELANOMA
     Dosage: DATE OF MOST RECENT DOSE OF STUDY DRUG: 18/OCT/2011
     Route: 048
     Dates: start: 20110823

REACTIONS (1)
  - RESPIRATORY FAILURE [None]
